FAERS Safety Report 8574632-3 (Version None)
Quarter: 2012Q3

REPORT INFORMATION
  Report Type: 
  Country: None (occurrence: None)
  Receive Date: 20120807
  Receipt Date: 20120802
  Transmission Date: 20120928
  Serious: Yes (Other)
  Sender: FDA-Public Use
  Company Number: IE-AMGEN-IRLSP2012048714

PATIENT
  Age: 79 Year
  Sex: Female
  Weight: 44 kg

DRUGS (5)
  1. TOLTERODINE TARTRATE [Concomitant]
     Indication: POLLAKIURIA
     Dosage: 4 MG, UNK
  2. NEBIVOLOL HCL [Concomitant]
     Dosage: 5 MG, UNK
  3. LIPITOR [Concomitant]
     Indication: HYPERLIPIDAEMIA
     Dosage: 10 MG, UNK
  4. PROLIA [Suspect]
     Indication: OSTEOPOROSIS
     Dosage: 60 MG, Q6MO
     Route: 058
     Dates: start: 20110125, end: 20120125
  5. ASPIRIN [Concomitant]
     Indication: PROPHYLAXIS
     Dosage: 75 MG, UNK

REACTIONS (7)
  - CONSTIPATION [None]
  - ABDOMINAL PAIN [None]
  - RASH PRURITIC [None]
  - WEIGHT DECREASED [None]
  - DYSURIA [None]
  - VOMITING [None]
  - RASH ERYTHEMATOUS [None]
